FAERS Safety Report 8921379 (Version 1)
Quarter: 2012Q4

REPORT INFORMATION
  Report Type: 
  Country: ES (occurrence: ES)
  Receive Date: 20121121
  Receipt Date: 20121121
  Transmission Date: 20130627
  Serious: Yes (Death)
  Sender: FDA-Public Use
  Company Number: ES-ROCHE-45932

PATIENT
  Age: 80 Year
  Sex: Female

DRUGS (5)
  1. ROCEPHALIN [Suspect]
     Indication: PRODUCT USED FOR UNKNOWN INDICATION
     Route: 042
     Dates: start: 19881130, end: 19881202
  2. MEFOXITIN [Interacting]
     Indication: PRODUCT USED FOR UNKNOWN INDICATION
     Route: 042
     Dates: start: 19881124, end: 19881130
  3. MEFOXITIN [Interacting]
     Route: 042
     Dates: start: 19881117, end: 19881124
  4. GENTAMICINA [Interacting]
     Indication: PRODUCT USED FOR UNKNOWN INDICATION
     Route: 042
     Dates: start: 19881130, end: 19881202
  5. GENTAMICINA [Interacting]
     Route: 042
     Dates: start: 19881124, end: 19881130

REACTIONS (1)
  - Renal failure [Fatal]
